FAERS Safety Report 6381705-2 (Version None)
Quarter: 2009Q3

REPORT INFORMATION
  Report Type: 
  Country: None (occurrence: None)
  Receive Date: 20090930
  Receipt Date: 20070619
  Transmission Date: 20100115
  Serious: Yes (Other)
  Sender: FDA-Public Use
  Company Number: US-ASTRAZENECA-2006UW26069

PATIENT
  Age: 44 Year
  Sex: Female
  Weight: 86.2 kg

DRUGS (13)
  1. SEROQUEL [Suspect]
     Indication: DEPRESSION
     Dosage: 200 TO 800 MG
     Route: 048
     Dates: start: 20030918
  2. SEROQUEL [Suspect]
     Route: 048
     Dates: start: 20040116, end: 20040405
  3. GEODON [Concomitant]
     Dates: start: 20060101
  4. RISPERDAL [Concomitant]
     Dates: start: 20000101
  5. RISPERDAL [Concomitant]
     Dates: start: 20030918
  6. ZYPREXA [Concomitant]
     Dates: start: 19970101, end: 20000101
  7. FLEXERIL [Concomitant]
     Dates: start: 20060510
  8. ELAVIL [Concomitant]
     Dosage: 25 TO 50 MG
     Dates: start: 20040305
  9. ZOLOFT [Concomitant]
     Dosage: 50 TO 200 MG
     Dates: start: 20000829
  10. ZYRTEC [Concomitant]
     Dates: start: 20030918
  11. CHLORZOXAZONE [Concomitant]
     Dates: start: 20030918
  12. PROZAC [Concomitant]
     Dosage: 20 TO 40 MG
     Dates: start: 20000622
  13. RESTORIL [Concomitant]
     Indication: SLEEP DISORDER
     Dates: start: 20030918

REACTIONS (2)
  - DIABETES MELLITUS [None]
  - DIABETIC NEUROPATHY [None]
